FAERS Safety Report 4638459-7 (Version None)
Quarter: 2005Q2

REPORT INFORMATION
  Report Type: 
  Country: None (occurrence: None)
  Receive Date: 20050418
  Receipt Date: 20050404
  Transmission Date: 20051028
  Serious: Yes (Hospitalization, Disabling)
  Sender: FDA-Public Use
  Company Number: 2005054811

PATIENT
  Age: 58 Year
  Sex: Male

DRUGS (11)
  1. CABERGOLINE [Suspect]
     Indication: PARKINSON'S DISEASE
     Dosage: 6 MG 96 MG, INTERVAL: DAILY), ORAL
     Route: 048
     Dates: start: 19970814, end: 20050111
  2. SINEMET [Concomitant]
  3. SELEGILINE HYDROCHLORIDE (SELEGILINE HYDROCHLORIDE) [Concomitant]
  4. SIMVASTATIN [Concomitant]
  5. TRANDOLAPRIL (TRANDOLAPRIL) [Concomitant]
  6. RISPERDAL [Concomitant]
  7. AMIODARONE HCL [Concomitant]
  8. FUROSEMIDE [Concomitant]
  9. CARVEDILOL [Concomitant]
  10. WARFARIN SODIUM [Concomitant]
  11. POTASSIUM ACETATE [Concomitant]

REACTIONS (3)
  - FIBROSIS [None]
  - MITRAL VALVE INCOMPETENCE [None]
  - TRICUSPID VALVE INCOMPETENCE [None]
